FAERS Safety Report 6520158-8 (Version None)
Quarter: 2009Q4

REPORT INFORMATION
  Report Type: 
  Country: None (occurrence: None)
  Receive Date: 20091229
  Receipt Date: 20091218
  Transmission Date: 20100525
  Serious: Yes (Hospitalization)
  Sender: FDA-Public Use
  Company Number: US-ALEXION-A200901066

PATIENT
  Sex: Female

DRUGS (7)
  1. SOLIRIS [Suspect]
     Indication: PAROXYSMAL NOCTURNAL HAEMOGLOBINURIA
     Dosage: UNK
     Dates: start: 20070601
  2. SOLIRIS [Suspect]
     Dosage: UNK
  3. FOLIC ACID [Concomitant]
     Dosage: 1 MG, QD
     Route: 048
  4. OXYCODONE [Concomitant]
     Dosage: 15 MG, Q8-12H, PRN
     Route: 048
  5. PHENERGAN HCL [Concomitant]
     Indication: NAUSEA
     Dosage: 25 MG, Q6H, PRN
     Route: 048
  6. PREDNISONE [Concomitant]
     Dosage: 40 MG, QD
     Route: 048
  7. PRILOSEC [Concomitant]
     Dosage: UNK

REACTIONS (4)
  - ARTHRALGIA [None]
  - CONDITION AGGRAVATED [None]
  - HAEMOGLOBIN DECREASED [None]
  - JOINT SWELLING [None]
